FAERS Safety Report 11837568 (Version 1)
Quarter: 2015Q4

REPORT INFORMATION
  Report Type: Spontaneous
  Country: US (occurrence: US)
  Receive Date: 20151215
  Receipt Date: 20151215
  Transmission Date: 20160305
  Serious: No
  Sender: FDA-Public Use
  Company Number: US-ELI_LILLY_AND_COMPANY-US201512001567

PATIENT
  Age: 69 Year
  Sex: Male
  Weight: 83.9 kg

DRUGS (2)
  1. HUMALOG [Suspect]
     Active Substance: INSULIN LISPRO
     Indication: PRODUCT USED FOR UNKNOWN INDICATION
     Dosage: UNK, UNKNOWN
     Route: 058
  2. HUMALOG [Suspect]
     Active Substance: INSULIN LISPRO
     Dosage: UNK, UNKNOWN
     Route: 058
     Dates: start: 20151129

REACTIONS (4)
  - Infusion site pain [Unknown]
  - Infusion site haemorrhage [Recovered/Resolved]
  - Blood glucose increased [Unknown]
  - Infusion site mass [Unknown]

NARRATIVE: CASE EVENT DATE: 201511
